FAERS Safety Report 21203828 (Version 4)
Quarter: 2022Q4

REPORT INFORMATION
  Report Type: Report from Study
  Country: US (occurrence: US)
  Receive Date: 20220811
  Receipt Date: 20221206
  Transmission Date: 20230113
  Serious: Yes (Hospitalization, Other)
  Sender: FDA-Public Use
  Company Number: US-ABBVIE-22K-163-4324871-00

PATIENT
  Age: 60 Year
  Sex: Female

DRUGS (4)
  1. HUMIRA [Suspect]
     Active Substance: ADALIMUMAB
     Indication: Psoriatic arthropathy
     Dosage: CF 40 MG
     Route: 058
     Dates: end: 20221031
  2. HUMIRA [Suspect]
     Active Substance: ADALIMUMAB
     Dosage: CF 40 MG
     Route: 058
     Dates: start: 20210222
  3. PFIZER-BIONTECH COVID-19 VACCINE [Suspect]
     Active Substance: TOZINAMERAN
     Indication: COVID-19 immunisation
     Dosage: 1ST DOSE ONCE IN ONCE
     Route: 030
     Dates: start: 20211105, end: 20211105
  4. PFIZER-BIONTECH COVID-19 VACCINE [Suspect]
     Active Substance: TOZINAMERAN
     Indication: COVID-19 immunisation
     Dosage: 2ND DOSE ONCE IN ONCE
     Route: 030
     Dates: start: 20211128, end: 20211128

REACTIONS (13)
  - Deep vein thrombosis [Recovered/Resolved]
  - Pulmonary embolism [Recovered/Resolved]
  - Thyroid disorder [Not Recovered/Not Resolved]
  - Thyroid operation [Recovering/Resolving]
  - Pulmonary mass [Unknown]
  - Thyroiditis [Unknown]
  - Pain [Not Recovered/Not Resolved]
  - Autoimmune thyroiditis [Not Recovered/Not Resolved]
  - Fatigue [Recovered/Resolved]
  - Coagulopathy [Recovered/Resolved]
  - Blood iron decreased [Recovered/Resolved]
  - Injection site bruising [Recovered/Resolved]
  - Neuralgia [Not Recovered/Not Resolved]

NARRATIVE: CASE EVENT DATE: 20220630
